FAERS Safety Report 5753533-X (Version None)
Quarter: 2008Q2

REPORT INFORMATION
  Report Type: 
  Country: None (occurrence: None)
  Receive Date: 20080530
  Receipt Date: 20080527
  Transmission Date: 20081010
  Serious: Yes (Hospitalization)
  Sender: FDA-Public Use
  Company Number: HQWYE450312FEB07

PATIENT
  Sex: Female
  Weight: 48.76 kg

DRUGS (11)
  1. TEMSIROLIMUS [Suspect]
     Indication: METASTATIC RENAL CELL CARCINOMA
     Route: 042
     Dates: start: 20070131
  2. FOLIC ACID [Concomitant]
     Indication: MEDICAL DIET
     Dosage: UNKNOWN
     Route: 065
     Dates: start: 20061226
  3. PROTONIX [Concomitant]
     Indication: HYPERCHLORHYDRIA
     Dosage: UNKNOWN
     Route: 065
     Dates: start: 20061226
  4. AMBIEN [Concomitant]
     Indication: INSOMNIA
     Dosage: UNKNOWN
     Route: 065
     Dates: start: 20060101
  5. CARAFATE [Concomitant]
     Indication: STOMACH DISCOMFORT
     Dosage: UNKNOWN
     Route: 065
     Dates: start: 20070131
  6. MORPHINE [Concomitant]
     Indication: PAIN
     Dosage: UNKNOWN
     Route: 065
     Dates: start: 20061003
  7. COMPAZINE [Concomitant]
     Indication: NAUSEA
     Dosage: 10 MG, FREQUENCY NOT PROVIDED
     Route: 048
     Dates: start: 20070101
  8. COMPAZINE [Concomitant]
     Indication: VOMITING
  9. XANAX [Concomitant]
     Indication: ANXIETY
     Dosage: 0.25 MG, FREQUENCY NOT PROVIDED
     Route: 065
     Dates: start: 20070101
  10. MEGACE [Concomitant]
     Indication: ANOREXIA
     Dosage: UNKNOWN
     Route: 065
     Dates: start: 20061226
  11. LEXAPRO [Concomitant]
     Indication: DEPRESSION
     Dosage: UNKNOWN
     Route: 065
     Dates: start: 20061226

REACTIONS (3)
  - DEHYDRATION [None]
  - NAUSEA [None]
  - VOMITING [None]
